FAERS Safety Report 23523679 (Version 1)
Quarter: 2024Q1

REPORT INFORMATION
  Report Type: Spontaneous
  Country: US (occurrence: US)
  Receive Date: 20240214
  Receipt Date: 20240214
  Transmission Date: 20240410
  Serious: Yes (Hospitalization)
  Sender: FDA-Public Use
  Company Number: US-FreseniusKabi-FK202402144

PATIENT
  Age: 55 Year
  Sex: Female
  Weight: 77.8 kg

DRUGS (12)
  1. MESNA [Suspect]
     Active Substance: MESNA
     Indication: B-cell type acute leukaemia
     Dosage: (CYCLE 1, 3 DOSE: 300 MG/M2, DAYS 1-3)
     Route: 042
  2. DEXAMETHASONE [Suspect]
     Active Substance: DEXAMETHASONE
     Indication: B-cell type acute leukaemia
     Dosage: (CYCLE: 1, 3, DOSE: 20 MG, SCHEDULE: DAYS 1-4, DAYS 11-14;  IV OR PO)
     Dates: start: 20231109, end: 20231119
  3. CYCLOPHOSPHAMIDE [Suspect]
     Active Substance: CYCLOPHOSPHAMIDE
     Indication: B-cell type acute leukaemia
     Dosage: (CYCLE 1, 3: 150 MG/M2, EVERY 12 HRS X 6 DOSES, DAYS 1-3),
     Route: 042
     Dates: start: 20231106, end: 20231109
  4. METHOTREXATE SODIUM [Suspect]
     Active Substance: METHOTREXATE SODIUM
     Indication: B-cell type acute leukaemia
     Dosage: (CYCLE 1-2: 12 MG, DAY 2, DAY 8 )
     Route: 037
  5. METHOTREXATE SODIUM [Suspect]
     Active Substance: METHOTREXATE SODIUM
     Dosage: CYCLE: 2, 4, DOSE: 250 MG/M2, SCHEDULE: DAY 1
     Route: 042
     Dates: start: 20231120, end: 20231128
  6. CYTARABINE [Suspect]
     Active Substance: CYTARABINE
     Indication: B-cell type acute leukaemia
     Dosage: CYCLE 1-2: 100 MG, DAY 2, DAY
     Route: 037
  7. CYTARABINE [Suspect]
     Active Substance: CYTARABINE
     Dosage: CYCLE: 2, 4, DOSE: 0.5 G/M2/DOSE, SCHEDULE: EVERY 12 HRS X 4 DOSES, DAYS 2, 3
     Route: 042
     Dates: start: 20231124, end: 20231129
  8. INOTUZUMAB OZOGAMICIN [Suspect]
     Active Substance: INOTUZUMAB OZOGAMICIN
     Indication: B-cell type acute leukaemia
     Dosage: CYCLE 1: TOTAL 0.9 MG/M2 (CYCLE 1: 0.6 MG/M2 D2, 0.3 MG/M2 D8)
     Route: 042
     Dates: start: 20231107, end: 20231205
  9. INOTUZUMAB OZOGAMICIN [Suspect]
     Active Substance: INOTUZUMAB OZOGAMICIN
     Dosage: CYCLES 2-4: TOTAL 0.6 MG/M2 (0.3 MG/M2 D2, 0.3 MG/M2 D8)
     Route: 042
     Dates: start: 20231107, end: 20231205
  10. RITUXIMAB [Suspect]
     Active Substance: RITUXIMAB
     Indication: B-cell type acute leukaemia
     Dosage: CYCLE: 1-4, DOSE: 375 MG/M2, SCHEDULE: DAY 2, DAY 8
     Route: 042
     Dates: start: 20231107, end: 20231205
  11. METHYLPREDNISOLONE [Suspect]
     Active Substance: METHYLPREDNISOLONE
     Indication: B-cell type acute leukaemia
     Dosage: CYCLE: 2, 4, DOSE: 50 MG, SCHEDULE: EVERY 12 HRS X 6 DOSES, DAYS 1-3
     Route: 042
  12. VINCRISTINE SULFATE [Suspect]
     Active Substance: VINCRISTINE SULFATE
     Indication: B-cell type acute leukaemia
     Dosage: CYCLE: 1, 3, DOSE: 2 MG, SCHEDULE: DAY 1, DAY 8
     Route: 042
     Dates: start: 20231106, end: 20231113

REACTIONS (1)
  - Febrile neutropenia [Recovering/Resolving]

NARRATIVE: CASE EVENT DATE: 20231206
